FAERS Safety Report 9730717 (Version 2)
Quarter: 2014Q1

REPORT INFORMATION
  Report Type: Spontaneous
  Country: US (occurrence: US)
  Receive Date: 20131202
  Receipt Date: 20140103
  Transmission Date: 20141002
  Serious: Yes (Hospitalization)
  Sender: FDA-Public Use
  Company Number: US-FRI-1000051774

PATIENT
  Age: 92 Year
  Sex: Male

DRUGS (7)
  1. LINZESS [Suspect]
     Indication: CONSTIPATION
     Dates: start: 20131113, end: 20131116
  2. BABY ASPIRIN [Concomitant]
     Dates: end: 201311
  3. NORVASC [Concomitant]
     Dosage: 5 MG
  4. METOPROLOL [Concomitant]
  5. SYNTHROID [Concomitant]
  6. MIRALAX [Concomitant]
     Dates: end: 201311
  7. AMIODARONE [Concomitant]
     Dosage: 200 MG

REACTIONS (4)
  - Lower gastrointestinal haemorrhage [Recovered/Resolved]
  - Syncope [Recovered/Resolved]
  - Orthostatic hypotension [Recovered/Resolved]
  - Fall [Recovered/Resolved]
